FAERS Safety Report 7580463-3 (Version None)
Quarter: 2011Q2

REPORT INFORMATION
  Report Type: 
  Country: None (occurrence: None)
  Receive Date: 20110629
  Receipt Date: 20110624
  Transmission Date: 20111010
  Serious: Yes (Hospitalization)
  Sender: FDA-Public Use
  Company Number: A0911677A

PATIENT
  Age: 66 Year
  Sex: Male

DRUGS (5)
  1. AVANDAMET [Suspect]
     Route: 048
     Dates: start: 20020801, end: 20090401
  2. ADVICOR [Concomitant]
  3. TOPROL-XL [Concomitant]
  4. NORVASC [Concomitant]
     Dates: end: 20090401
  5. AVANDIA [Suspect]
     Indication: DIABETES MELLITUS
     Route: 048
     Dates: start: 20040101, end: 20090201

REACTIONS (6)
  - ATRIAL FIBRILLATION [None]
  - SUPRAVENTRICULAR TACHYCARDIA [None]
  - CHEST PAIN [None]
  - CORONARY ARTERY DISEASE [None]
  - ATRIAL FLUTTER [None]
  - STENT PLACEMENT [None]
